FAERS Safety Report 26149907 (Version 1)
Quarter: 2025Q4

REPORT INFORMATION
  Report Type: Spontaneous
  Country: EU (occurrence: EU)
  Receive Date: 20251212
  Receipt Date: 20251212
  Transmission Date: 20260118
  Serious: Yes (Other)
  Sender: AMGEN
  Company Number: EU-ABBVIE-6566250

PATIENT
  Age: 12 Year
  Sex: Male

DRUGS (3)
  1. ADALIMUMAB [Suspect]
     Active Substance: ADALIMUMAB
     Indication: Crohn^s disease
     Dosage: UNK
     Route: 058
     Dates: start: 202110, end: 202304
  2. WEZLANA [Suspect]
     Active Substance: USTEKINUMAB-AUUB
     Indication: Crohn^s disease
     Dosage: UNK
     Route: 065
     Dates: start: 202402, end: 202406
  3. INFLIXIMAB [Suspect]
     Active Substance: INFLIXIMAB
     Indication: Crohn^s disease
     Dosage: DOSE: 10 MG/KG
     Route: 065
     Dates: start: 202304, end: 202402

REACTIONS (4)
  - Intestinal stenosis [Unknown]
  - Anal abscess [Unknown]
  - Gastrointestinal inflammation [Unknown]
  - Drug ineffective [Unknown]

NARRATIVE: CASE EVENT DATE: 20211001
